FAERS Safety Report 13355148 (Version 1)
Quarter: 2017Q1

REPORT INFORMATION
  Report Type: Spontaneous
  Country: US (occurrence: US)
  Receive Date: 20170321
  Receipt Date: 20170321
  Transmission Date: 20170429
  Serious: No
  Sender: FDA-Public Use
  Company Number: US-BAUSCH-BL-2016-013505

PATIENT
  Sex: Female
  Weight: 52.21 kg

DRUGS (1)
  1. RETIN-A [Suspect]
     Active Substance: TRETINOIN
     Indication: SKIN WRINKLING
     Route: 061
     Dates: start: 2014, end: 20160601

REACTIONS (2)
  - Off label use [Unknown]
  - Alopecia [Not Recovered/Not Resolved]

NARRATIVE: CASE EVENT DATE: 2014
